FAERS Safety Report 5267610-3 (Version None)
Quarter: 2007Q1

REPORT INFORMATION
  Report Type: 
  Country: None (occurrence: None)
  Receive Date: 20070316
  Receipt Date: 20070307
  Transmission Date: 20070707
  Serious: Yes (Other)
  Sender: FDA-Public Use
  Company Number: DE-ABBOTT-07P-062-0359784-00

PATIENT
  Sex: Male
  Weight: 91 kg

DRUGS (5)
  1. HUMIRA [Suspect]
     Indication: RHEUMATOID ARTHRITIS
     Route: 058
     Dates: start: 20061028
  2. GLUCOCORTICOIDS [Concomitant]
     Indication: RHEUMATOID ARTHRITIS
     Route: 048
     Dates: start: 20061101, end: 20070214
  3. GLUCOCORTICOIDS [Concomitant]
     Route: 048
     Dates: start: 20070215
  4. ANALGESICS [Concomitant]
     Indication: RHEUMATOID ARTHRITIS
  5. NON SELECTIVE NSAR [Concomitant]
     Indication: RHEUMATOID ARTHRITIS

REACTIONS (5)
  - COORDINATION ABNORMAL [None]
  - DIABETES MELLITUS [None]
  - MESANGIOPROLIFERATIVE GLOMERULONEPHRITIS [None]
  - NEPHROSCLEROSIS [None]
  - TREMOR [None]
